FAERS Safety Report 24730988 (Version 4)
Quarter: 2025Q3

REPORT INFORMATION
  Report Type: Spontaneous
  Country: JP (occurrence: JP)
  Receive Date: 20241213
  Receipt Date: 20250918
  Transmission Date: 20251021
  Serious: Yes (Other)
  Sender: NOVARTIS
  Company Number: JP-HALEON-2213774

PATIENT
  Age: 8 Year
  Sex: Female

DRUGS (8)
  1. TERBINAFINE [Suspect]
     Active Substance: TERBINAFINE
     Indication: Microsporum infection
     Route: 065
  2. TERBINAFINE [Suspect]
     Active Substance: TERBINAFINE
     Indication: Body tinea
  3. LULICONAZOLE [Suspect]
     Active Substance: LULICONAZOLE
     Indication: Body tinea
     Route: 065
  4. LULICONAZOLE [Suspect]
     Active Substance: LULICONAZOLE
     Indication: Microsporum infection
     Route: 065
  5. LULICONAZOLE [Suspect]
     Active Substance: LULICONAZOLE
     Indication: Product used for unknown indication
  6. ITRACONAZOLE [Concomitant]
     Active Substance: ITRACONAZOLE
     Indication: Body tinea
     Route: 065
  7. ITRACONAZOLE [Concomitant]
     Active Substance: ITRACONAZOLE
     Dosage: 60 MG, QD (3MG/KG/DAY)
     Route: 048
  8. FOSRAVUCONAZOLE L-LYSINE ETHANOLATE [Concomitant]
     Active Substance: FOSRAVUCONAZOLE L-LYSINE ETHANOLATE
     Indication: Product used for unknown indication
     Route: 065

REACTIONS (4)
  - Cutaneous symptom [Unknown]
  - Hepatic function abnormal [Recovered/Resolved]
  - Skin irritation [Unknown]
  - Off label use [Unknown]
